FAERS Safety Report 9536433 (Version 1)
Quarter: 2013Q2

REPORT INFORMATION
  Report Type: Spontaneous
  Country: US (occurrence: None)
  Receive Date: 20130507
  Receipt Date: 20130507
  Transmission Date: 20140414
  Serious: No
  Sender: FDA-Public Use
  Company Number: PHEH2012US024092

PATIENT
  Age: 72 Year
  Sex: Female

DRUGS (10)
  1. AFINITOR (RAD) [Suspect]
     Indication: BLADDER CANCER
     Route: 048
  2. EXEMESTANE [Suspect]
     Indication: BLADDER CANCER
     Route: 048
  3. CIPROFLOXACIN [Suspect]
  4. TENATOPRAZOLE (TENATOPRAZOLE) [Concomitant]
  5. MECLIZINE (MECLOZINE) [Concomitant]
  6. ATENOLOL (ATENOLOL) [Concomitant]
  7. DILTIAZEM (DILTIAZEM) [Concomitant]
  8. LORAZEPAM (LORAZEPAM) [Concomitant]
  9. OXYCODONE (OXYCODONE) [Concomitant]
  10. VENTOLIN HFA (SALBUTAMOL SULFATE) [Concomitant]

REACTIONS (14)
  - Cystitis [None]
  - Urticaria [None]
  - Memory impairment [None]
  - Tremor [None]
  - Malaise [None]
  - Bone pain [None]
  - Dizziness [None]
  - Dyspnoea [None]
  - Chest pain [None]
  - Wheezing [None]
  - Arthralgia [None]
  - Cough [None]
  - Dysuria [None]
  - Pollakiuria [None]
